FAERS Safety Report 5714431-0 (Version None)
Quarter: 2008Q2

REPORT INFORMATION
  Report Type: 
  Country: None (occurrence: None)
  Receive Date: 20080423
  Receipt Date: 20030428
  Transmission Date: 20081010
  Serious: Yes (Death)
  Sender: FDA-Public Use
  Company Number: US-ROCHE-337103

PATIENT
  Age: 71 Year
  Sex: Female
  Weight: 62.6 kg

DRUGS (1)
  1. TRETINOIN [Suspect]
     Indication: EMPHYSEMA
     Dosage: DIVIDED DAILY DOSE
     Route: 048
     Dates: start: 20010517

REACTIONS (1)
  - DEATH [None]
